FAERS Safety Report 5755358-8 (Version None)
Quarter: 2008Q2

REPORT INFORMATION
  Report Type: 
  Country: None (occurrence: None)
  Receive Date: 20080602
  Receipt Date: 20080526
  Transmission Date: 20081010
  Serious: Yes (Hospitalization)
  Sender: FDA-Public Use
  Company Number: FR-AVENTIS-200811964FR

PATIENT
  Age: 100 Year
  Sex: Female

DRUGS (7)
  1. SECTRAL [Suspect]
     Indication: ATRIAL FIBRILLATION
     Route: 048
     Dates: start: 20060101, end: 20080413
  2. LASIX [Suspect]
     Indication: HYPERTENSION
     Route: 048
  3. KARDEGIC                           /00002703/ [Concomitant]
     Indication: PROPHYLAXIS
     Route: 048
  4. INIPOMP                            /01263201/ [Concomitant]
     Route: 048
  5. EQUANIL [Concomitant]
     Indication: AGITATION
     Route: 048
  6. DOLIPRANE [Concomitant]
     Route: 048
  7. ATARAX [Concomitant]
     Route: 048
     Dates: end: 20080416

REACTIONS (10)
  - BLOOD GLUCOSE INCREASED [None]
  - BLOOD PRESSURE SYSTOLIC INCREASED [None]
  - BODY TEMPERATURE DECREASED [None]
  - CREATININE RENAL CLEARANCE DECREASED [None]
  - DRUG INTERACTION [None]
  - FALL [None]
  - HAEMOGLOBIN DECREASED [None]
  - MALAISE [None]
  - OPEN WOUND [None]
  - ORTHOSTATIC HYPOTENSION [None]
